FAERS Safety Report 8103441-4 (Version None)
Quarter: 2012Q1

REPORT INFORMATION
  Report Type: 
  Country: None (occurrence: None)
  Receive Date: 20120201
  Receipt Date: 20120123
  Transmission Date: 20120608
  Serious: Yes (Death, Other)
  Sender: FDA-Public Use
  Company Number: PHHY2012JP007957

PATIENT
  Age: 58 Year
  Sex: Male

DRUGS (1)
  1. AFINITOR [Suspect]
     Indication: RENAL CELL CARCINOMA
     Dosage: UNK UKN, UNK
     Route: 048
     Dates: start: 20100501

REACTIONS (2)
  - DEATH [None]
  - METASTASES TO LUNG [None]
